FAERS Safety Report 11925182 (Version 2)
Quarter: 2016Q1

REPORT INFORMATION
  Report Type: Report from Study
  Country: KR (occurrence: KR)
  Receive Date: 20160118
  Receipt Date: 20160120
  Transmission Date: 20160526
  Serious: Yes (Hospitalization)
  Sender: FDA-Public Use
  Company Number: KR-AMGEN-KORCT2015139844

PATIENT
  Age: 72 Year
  Sex: Male
  Weight: 65 kg

DRUGS (19)
  1. MEGACE F [Concomitant]
     Indication: DECREASED APPETITE
     Dosage: 5 ML, QD
     Route: 048
     Dates: start: 20151218, end: 20151220
  2. TALION                             /01393102/ [Concomitant]
     Dosage: UNK
     Dates: start: 20151228, end: 20160111
  3. MELPHALAN [Suspect]
     Active Substance: MELPHALAN
     Indication: PLASMA CELL MYELOMA
     Dosage: 14 MG, PER CHEMO REGIM
     Route: 048
     Dates: start: 20141218
  4. PREDNISONE. [Suspect]
     Active Substance: PREDNISONE
     Indication: PLASMA CELL MYELOMA
     Dosage: 105 MG, PER CHEMO REGIM
     Route: 048
     Dates: start: 20141218
  5. SUDAFED [Concomitant]
     Active Substance: PSEUDOEPHEDRINE HYDROCHLORIDE
     Indication: NASAL OBSTRUCTION
     Dosage: 180 MG, TID
     Route: 048
     Dates: start: 20151216, end: 20151222
  6. CAFSOL [Concomitant]
     Dosage: 500 ML, PER CHEMO REGIM
     Route: 042
     Dates: start: 20160108, end: 20160108
  7. PANORIN [Concomitant]
     Dosage: 90 MG, UNK
     Dates: start: 20160104, end: 20160104
  8. BANAN [Concomitant]
     Active Substance: CEFPODOXIME PROXETIL
     Dosage: 200 MG, UNK
     Dates: start: 20160111
  9. NORMAL SALINE [Concomitant]
     Active Substance: SODIUM CHLORIDE
     Dosage: 500 MG, UNK
     Dates: start: 20151229, end: 20160111
  10. TYLENOL ER [Concomitant]
     Active Substance: ACETAMINOPHEN
     Indication: PYREXIA
     Dosage: 650 MG, QD
     Route: 048
     Dates: start: 20151216, end: 20151217
  11. STOGAR [Concomitant]
     Dosage: UNK
     Dates: start: 20151229, end: 20160111
  12. CARFILZOMIB [Suspect]
     Active Substance: CARFILZOMIB
     Indication: PLASMA CELL MYELOMA
     Dosage: 27 MG/M2, PER CHEMO REGIM
     Route: 042
     Dates: start: 20141218
  13. PLOKON [Concomitant]
     Indication: PYREXIA
     Dosage: 3 MG, QD
     Route: 042
     Dates: start: 20151216, end: 20151216
  14. AGIO [Concomitant]
     Dosage: UNK
     Dates: start: 20151230
  15. CORTISOLU [Concomitant]
     Active Substance: HYDROCORTISONE SODIUM SUCCINATE
     Indication: PYREXIA
     Dosage: 50 MG, QD
     Route: 042
     Dates: start: 20151216, end: 20151217
  16. HYALEIN [Concomitant]
     Active Substance: HYALURONATE SODIUM
     Indication: GLAUCOMA
     Dosage: 1 UNK, AS NECESSARY
     Route: 047
     Dates: start: 20151217
  17. Z SPAN [Concomitant]
     Dosage: UNK UNK, QD
     Route: 048
     Dates: start: 20160111, end: 20160111
  18. PHAZYME COMPLEX [Concomitant]
     Indication: DYSPEPSIA
     Dosage: 1 UNK, QD
     Route: 048
     Dates: start: 20151215, end: 20151215
  19. AMINOGLU [Concomitant]
     Indication: NUTRITIONAL SUPPLEMENTATION
     Dosage: 250 ML, QD
     Route: 042
     Dates: start: 20151217, end: 20151217

REACTIONS (2)
  - Pyrexia [Not Recovered/Not Resolved]
  - Otitis media [Recovered/Resolved]

NARRATIVE: CASE EVENT DATE: 20151227
